FAERS Safety Report 12907898 (Version 2)
Quarter: 2016Q4

REPORT INFORMATION
  Report Type: Spontaneous
  Country: TR (occurrence: TR)
  Receive Date: 20161103
  Receipt Date: 20161202
  Transmission Date: 20170207
  Serious: Yes (Hospitalization)
  Sender: FDA-Public Use
  Company Number: TR-GILEAD-2016-0240923

PATIENT
  Age: 66 Year
  Sex: Female
  Weight: 62 kg

DRUGS (5)
  1. VIRON /00023501/ [Suspect]
     Active Substance: IRON
     Indication: HEPATITIS C
     Dosage: 1000 MG, UNK
     Route: 048
     Dates: start: 20161014
  2. LEVOTIRON [Concomitant]
     Active Substance: LEVOTHYROXINE SODIUM
  3. DIDERAL [Concomitant]
     Active Substance: PROPRANOLOL HYDROCHLORIDE
  4. COVERSYL                           /00790702/ [Concomitant]
     Active Substance: PERINDOPRIL
  5. HARVONI [Suspect]
     Active Substance: LEDIPASVIR\SOFOSBUVIR
     Indication: HEPATITIS C
     Dosage: 1 DF, UNK
     Route: 048
     Dates: start: 20161014

REACTIONS (2)
  - Vomiting [Recovered/Resolved]
  - Dyspepsia [Recovered/Resolved]

NARRATIVE: CASE EVENT DATE: 20161028
